FAERS Safety Report 17433139 (Version 68)
Quarter: 2025Q3

REPORT INFORMATION
  Report Type: Spontaneous
  Country: CA (occurrence: CA)
  Receive Date: 20200219
  Receipt Date: 20250822
  Transmission Date: 20251021
  Serious: Yes (Death, Life-Threatening, Hospitalization, Disabling, Congenital Anomaly, Other)
  Sender: AMGEN
  Company Number: CA-AMGEN-CANSP2016091942

PATIENT
  Age: 43 Year
  Sex: Female
  Weight: 96 kg

DRUGS (547)
  1. AIMOVIG [Suspect]
     Active Substance: ERENUMAB-AOOE
     Indication: Migraine
     Route: 065
  2. AIMOVIG [Suspect]
     Active Substance: ERENUMAB-AOOE
     Route: 065
  3. ERENUMAB [Suspect]
     Active Substance: ERENUMAB
     Indication: Migraine
     Route: 065
  4. ERENUMAB [Suspect]
     Active Substance: ERENUMAB
     Route: 065
  5. ERENUMAB [Suspect]
     Active Substance: ERENUMAB
     Route: 065
  6. ENBREL [Suspect]
     Active Substance: ETANERCEPT
     Indication: Rheumatoid arthritis
     Dosage: 50 MILLIGRAM, QWK
     Route: 058
  7. ENBREL [Suspect]
     Active Substance: ETANERCEPT
     Indication: Psoriatic arthropathy
     Route: 058
  8. ENBREL [Suspect]
     Active Substance: ETANERCEPT
     Indication: Product used for unknown indication
     Dosage: 20 MILLIGRAM, QWK
     Route: 058
  9. ENBREL [Suspect]
     Active Substance: ETANERCEPT
     Route: 065
  10. ENBREL [Suspect]
     Active Substance: ETANERCEPT
     Dosage: 25 MILLIGRAM, QD (1 EVERY 1 DAY)
     Route: 048
  11. ENBREL [Suspect]
     Active Substance: ETANERCEPT
     Dosage: 50 MILLIGRAM, QWK
     Route: 058
  12. ENBREL [Suspect]
     Active Substance: ETANERCEPT
     Dosage: 20 MILLIGRAM, QWK
     Route: 058
  13. ENBREL [Suspect]
     Active Substance: ETANERCEPT
     Route: 058
  14. ENBREL [Suspect]
     Active Substance: ETANERCEPT
     Dosage: 50 MILLIGRAM, QWK
     Route: 058
  15. ENBREL [Suspect]
     Active Substance: ETANERCEPT
     Route: 065
  16. ENBREL [Suspect]
     Active Substance: ETANERCEPT
     Route: 065
  17. ENBREL [Suspect]
     Active Substance: ETANERCEPT
     Route: 065
  18. ENBREL [Suspect]
     Active Substance: ETANERCEPT
     Route: 065
  19. ENBREL [Suspect]
     Active Substance: ETANERCEPT
     Route: 048
  20. ENBREL [Suspect]
     Active Substance: ETANERCEPT
     Route: 065
  21. ENBREL [Suspect]
     Active Substance: ETANERCEPT
     Route: 065
  22. ENBREL [Suspect]
     Active Substance: ETANERCEPT
     Route: 065
  23. ENBREL [Suspect]
     Active Substance: ETANERCEPT
     Dosage: 100 MILLIGRAM, QD/ SUBDERMAL
     Route: 065
  24. ENBREL [Suspect]
     Active Substance: ETANERCEPT
     Route: 065
  25. ENBREL [Suspect]
     Active Substance: ETANERCEPT
     Route: 065
  26. ENBREL [Suspect]
     Active Substance: ETANERCEPT
     Dosage: 100 MILLIGRAM, QD
     Route: 058
  27. ENBREL [Suspect]
     Active Substance: ETANERCEPT
     Route: 058
  28. ENBREL [Suspect]
     Active Substance: ETANERCEPT
     Dosage: 20 MILLIGRAM, QD
     Route: 058
  29. ENBREL [Suspect]
     Active Substance: ETANERCEPT
     Route: 058
  30. ENBREL [Suspect]
     Active Substance: ETANERCEPT
     Route: 065
  31. ENBREL [Suspect]
     Active Substance: ETANERCEPT
     Route: 058
  32. ENBREL [Suspect]
     Active Substance: ETANERCEPT
     Route: 058
  33. ENBREL [Suspect]
     Active Substance: ETANERCEPT
     Route: 065
  34. ENBREL [Suspect]
     Active Substance: ETANERCEPT
     Route: 065
  35. ENBREL [Suspect]
     Active Substance: ETANERCEPT
     Route: 058
  36. ENBREL [Suspect]
     Active Substance: ETANERCEPT
     Route: 048
  37. ENBREL [Suspect]
     Active Substance: ETANERCEPT
     Route: 058
  38. ENBREL [Suspect]
     Active Substance: ETANERCEPT
     Route: 065
  39. ENBREL [Suspect]
     Active Substance: ETANERCEPT
     Route: 065
  40. ENBREL [Suspect]
     Active Substance: ETANERCEPT
     Route: 065
  41. ENBREL [Suspect]
     Active Substance: ETANERCEPT
     Dosage: 20 MILLIGRAM, QWK/ SUBDERMAL
     Route: 065
  42. OTEZLA [Suspect]
     Active Substance: APREMILAST
     Indication: Product used for unknown indication
     Dosage: 3 MILLIGRAM, BID
     Route: 065
  43. OTEZLA [Suspect]
     Active Substance: APREMILAST
     Indication: Rheumatoid arthritis
     Dosage: 6 MILLIGRAM, QD
     Route: 065
  44. OTEZLA [Suspect]
     Active Substance: APREMILAST
     Route: 048
  45. APREMILAST [Suspect]
     Active Substance: APREMILAST
     Indication: Product used for unknown indication
     Dosage: 3 MILLIGRAM, BID
     Route: 065
  46. APREMILAST [Suspect]
     Active Substance: APREMILAST
     Route: 065
  47. APREMILAST [Suspect]
     Active Substance: APREMILAST
     Dosage: 3 MILLIGRAM, QD (1 EVERY 1 DAY)
     Route: 065
  48. APREMILAST [Suspect]
     Active Substance: APREMILAST
     Route: 065
  49. APREMILAST [Suspect]
     Active Substance: APREMILAST
     Route: 065
  50. ADALIMUMAB [Suspect]
     Active Substance: ADALIMUMAB
     Indication: Rheumatoid arthritis
     Route: 065
  51. ADALIMUMAB [Suspect]
     Active Substance: ADALIMUMAB
     Indication: Product used for unknown indication
     Route: 058
  52. ADALIMUMAB [Suspect]
     Active Substance: ADALIMUMAB
     Route: 058
  53. ADALIMUMAB [Suspect]
     Active Substance: ADALIMUMAB
     Route: 058
  54. ADALIMUMAB [Suspect]
     Active Substance: ADALIMUMAB
     Route: 048
  55. ADALIMUMAB [Suspect]
     Active Substance: ADALIMUMAB
     Route: 058
  56. RITUXIMAB [Suspect]
     Active Substance: RITUXIMAB
     Indication: Rheumatoid arthritis
     Route: 065
  57. RITUXIMAB [Suspect]
     Active Substance: RITUXIMAB
     Indication: Product used for unknown indication
     Route: 040
  58. RITUXIMAB [Suspect]
     Active Substance: RITUXIMAB
     Route: 040
  59. RITUXIMAB [Suspect]
     Active Substance: RITUXIMAB
     Route: 040
  60. RITUXIMAB [Suspect]
     Active Substance: RITUXIMAB
     Route: 043
  61. RITUXIMAB [Suspect]
     Active Substance: RITUXIMAB
     Route: 040
  62. RITUXIMAB [Suspect]
     Active Substance: RITUXIMAB
     Route: 065
  63. RITUXIMAB [Suspect]
     Active Substance: RITUXIMAB
     Route: 016
  64. RITUXIMAB [Suspect]
     Active Substance: RITUXIMAB
     Route: 016
  65. RITUXIMAB [Suspect]
     Active Substance: RITUXIMAB
     Route: 016
  66. RITUXIMAB [Suspect]
     Active Substance: RITUXIMAB
     Route: 040
  67. RITUXIMAB [Suspect]
     Active Substance: RITUXIMAB
     Route: 040
  68. RITUXIMAB [Suspect]
     Active Substance: RITUXIMAB
     Route: 040
  69. RITUXIMAB [Suspect]
     Active Substance: RITUXIMAB
     Route: 040
  70. RITUXIMAB [Suspect]
     Active Substance: RITUXIMAB
     Route: 040
  71. RITUXIMAB [Suspect]
     Active Substance: RITUXIMAB
     Route: 058
  72. INFLIXIMAB [Suspect]
     Active Substance: INFLIXIMAB
     Indication: Rheumatoid arthritis
     Route: 040
  73. INFLIXIMAB [Suspect]
     Active Substance: INFLIXIMAB
     Indication: Psoriatic arthropathy
     Route: 065
  74. INFLIXIMAB [Suspect]
     Active Substance: INFLIXIMAB
     Route: 065
  75. COSENTYX [Suspect]
     Active Substance: SECUKINUMAB
     Indication: Psoriatic arthropathy
     Route: 065
  76. COSENTYX [Suspect]
     Active Substance: SECUKINUMAB
     Indication: Rheumatoid arthritis
     Route: 065
  77. COSENTYX [Suspect]
     Active Substance: SECUKINUMAB
     Route: 065
  78. COSENTYX [Suspect]
     Active Substance: SECUKINUMAB
     Route: 065
  79. ERELZI [Suspect]
     Active Substance: ETANERCEPT-SZZS
     Indication: Rheumatoid arthritis
     Dosage: 50 MILLIGRAM, QWK
     Route: 058
  80. ERELZI [Suspect]
     Active Substance: ETANERCEPT-SZZS
     Dosage: 50 MILLIGRAM, QWK
     Route: 058
  81. ERELZI [Suspect]
     Active Substance: ETANERCEPT-SZZS
     Route: 058
  82. ERELZI [Suspect]
     Active Substance: ETANERCEPT-SZZS
     Dosage: 20 MILLIGRAM, QWK
     Route: 058
  83. ERELZI [Suspect]
     Active Substance: ETANERCEPT-SZZS
     Route: 065
  84. ERELZI [Suspect]
     Active Substance: ETANERCEPT-SZZS
     Route: 058
  85. ERELZI [Suspect]
     Active Substance: ETANERCEPT-SZZS
     Dosage: 5 MILLIGRAM, QWK
     Route: 065
  86. ERELZI [Suspect]
     Active Substance: ETANERCEPT-SZZS
     Route: 058
  87. ERELZI [Suspect]
     Active Substance: ETANERCEPT-SZZS
     Route: 065
  88. ERELZI [Suspect]
     Active Substance: ETANERCEPT-SZZS
     Route: 065
  89. DICLOFENAC DIETHYLAMINE [Suspect]
     Active Substance: DICLOFENAC DIETHYLAMINE
     Indication: Product used for unknown indication
     Route: 065
  90. DICLOFENAC DIETHYLAMINE [Suspect]
     Active Substance: DICLOFENAC DIETHYLAMINE
     Route: 065
  91. LEFLUNOMIDE [Suspect]
     Active Substance: LEFLUNOMIDE
     Indication: Rheumatoid arthritis
     Route: 048
  92. LEFLUNOMIDE [Suspect]
     Active Substance: LEFLUNOMIDE
     Indication: Product used for unknown indication
     Dosage: 20 MILLIGRAM, QD
     Route: 065
  93. LEFLUNOMIDE [Suspect]
     Active Substance: LEFLUNOMIDE
     Dosage: 10 MILLIGRAM, QD
     Route: 065
  94. LEFLUNOMIDE [Suspect]
     Active Substance: LEFLUNOMIDE
     Route: 048
  95. LEFLUNOMIDE [Suspect]
     Active Substance: LEFLUNOMIDE
     Route: 065
  96. LEFLUNOMIDE [Suspect]
     Active Substance: LEFLUNOMIDE
     Route: 065
  97. LEFLUNOMIDE [Suspect]
     Active Substance: LEFLUNOMIDE
     Route: 048
  98. CANDESARTAN [Suspect]
     Active Substance: CANDESARTAN
     Indication: Migraine
     Route: 048
  99. CANDESARTAN [Suspect]
     Active Substance: CANDESARTAN
     Route: 065
  100. DICLOFENAC SODIUM [Suspect]
     Active Substance: DICLOFENAC SODIUM
     Indication: Product used for unknown indication
     Route: 058
  101. DICLOFENAC SODIUM [Suspect]
     Active Substance: DICLOFENAC SODIUM
     Indication: Osteoarthritis
     Route: 065
  102. DICLOFENAC SODIUM [Suspect]
     Active Substance: DICLOFENAC SODIUM
     Indication: Rheumatoid arthritis
     Route: 065
  103. DICLOFENAC SODIUM [Suspect]
     Active Substance: DICLOFENAC SODIUM
     Indication: Inflammation
     Route: 058
  104. DICLOFENAC SODIUM [Suspect]
     Active Substance: DICLOFENAC SODIUM
     Route: 065
  105. DICLOFENAC SODIUM [Suspect]
     Active Substance: DICLOFENAC SODIUM
     Route: 065
  106. DICLOFENAC SODIUM [Suspect]
     Active Substance: DICLOFENAC SODIUM
     Route: 058
  107. DICLOFENAC SODIUM [Suspect]
     Active Substance: DICLOFENAC SODIUM
     Route: 058
  108. DICLOFENAC SODIUM [Suspect]
     Active Substance: DICLOFENAC SODIUM
     Route: 065
  109. DICLOFENAC POTASSIUM [Suspect]
     Active Substance: DICLOFENAC POTASSIUM
     Indication: Product used for unknown indication
     Route: 065
  110. DICLOFENAC POTASSIUM [Suspect]
     Active Substance: DICLOFENAC POTASSIUM
     Route: 065
  111. LAMICTAL [Suspect]
     Active Substance: LAMOTRIGINE
     Indication: Product used for unknown indication
     Dosage: 50 MG, Q12H
     Route: 048
  112. LAMICTAL [Suspect]
     Active Substance: LAMOTRIGINE
     Route: 048
  113. LAMICTAL [Suspect]
     Active Substance: LAMOTRIGINE
     Route: 065
  114. TOPICORT [Suspect]
     Active Substance: DESOXIMETASONE
     Indication: Product used for unknown indication
     Dosage: 1 DOSAGE FORM, Q12H
     Route: 065
  115. TOPICORT [Suspect]
     Active Substance: DESOXIMETASONE
     Route: 065
  116. TOPICORT [Suspect]
     Active Substance: DESOXIMETASONE
     Dosage: 25 MG, Q12H
     Route: 065
  117. TOPICORT [Suspect]
     Active Substance: DESOXIMETASONE
     Dosage: 3 MG, QD
     Route: 065
  118. DOMPERIDONE MALEATE [Suspect]
     Active Substance: DOMPERIDONE MALEATE
     Indication: Product used for unknown indication
     Dosage: 1 DOSAGE FORM, QD
     Route: 065
  119. DOMPERIDONE MALEATE [Suspect]
     Active Substance: DOMPERIDONE MALEATE
     Route: 065
  120. FOLIC ACID [Suspect]
     Active Substance: FOLIC ACID
     Indication: Rheumatoid arthritis
     Route: 065
  121. FOLIC ACID [Suspect]
     Active Substance: FOLIC ACID
     Indication: Product used for unknown indication
     Route: 048
  122. FOLIC ACID [Suspect]
     Active Substance: FOLIC ACID
     Route: 065
  123. FOLIC ACID [Suspect]
     Active Substance: FOLIC ACID
     Route: 065
  124. FOLIC ACID [Suspect]
     Active Substance: FOLIC ACID
     Route: 048
  125. FOLIC ACID [Suspect]
     Active Substance: FOLIC ACID
     Route: 065
  126. FOLIC ACID [Suspect]
     Active Substance: FOLIC ACID
     Route: 065
  127. FOLIC ACID [Suspect]
     Active Substance: FOLIC ACID
     Route: 065
  128. FOLIC ACID [Suspect]
     Active Substance: FOLIC ACID
     Route: 065
  129. FOLIC ACID [Suspect]
     Active Substance: FOLIC ACID
     Route: 065
  130. FOLIC ACID [Suspect]
     Active Substance: FOLIC ACID
     Route: 048
  131. FOLIC ACID [Suspect]
     Active Substance: FOLIC ACID
     Route: 065
  132. FOLIC ACID [Suspect]
     Active Substance: FOLIC ACID
     Route: 048
  133. FOLIC ACID [Suspect]
     Active Substance: FOLIC ACID
     Route: 065
  134. FOLIC ACID [Suspect]
     Active Substance: FOLIC ACID
     Route: 065
  135. FOLIC ACID [Suspect]
     Active Substance: FOLIC ACID
     Route: 058
  136. FOLIC ACID [Suspect]
     Active Substance: FOLIC ACID
     Dosage: 5 MILLIGRAM, QD
     Route: 065
  137. FOLIC ACID [Suspect]
     Active Substance: FOLIC ACID
     Route: 065
  138. FOLIC ACID [Suspect]
     Active Substance: FOLIC ACID
     Route: 065
  139. FOLIC ACID [Suspect]
     Active Substance: FOLIC ACID
     Route: 065
  140. FOLIC ACID [Suspect]
     Active Substance: FOLIC ACID
     Route: 048
  141. FOLIC ACID [Suspect]
     Active Substance: FOLIC ACID
     Route: 065
  142. FOLIC ACID [Suspect]
     Active Substance: FOLIC ACID
     Route: 065
  143. FOLIC ACID [Suspect]
     Active Substance: FOLIC ACID
     Route: 065
  144. MYCOPHENOLATE MOFETIL [Suspect]
     Active Substance: MYCOPHENOLATE MOFETIL
     Indication: Product used for unknown indication
     Route: 065
  145. OXYCODONE HYDROCHLORIDE [Suspect]
     Active Substance: OXYCODONE HYDROCHLORIDE
     Indication: Product used for unknown indication
     Route: 065
  146. OXYCODONE HYDROCHLORIDE [Suspect]
     Active Substance: OXYCODONE HYDROCHLORIDE
     Route: 065
  147. PANTOPRAZOLE [Suspect]
     Active Substance: PANTOPRAZOLE
     Indication: Dyspepsia
     Route: 065
  148. PANTOPRAZOLE [Suspect]
     Active Substance: PANTOPRAZOLE
     Route: 065
  149. HYDROCORTISONE [Suspect]
     Active Substance: HYDROCORTISONE
     Indication: Rheumatoid arthritis
     Route: 065
  150. HYDROCORTISONE [Suspect]
     Active Substance: HYDROCORTISONE
     Route: 058
  151. HYDROCORTISONE [Suspect]
     Active Substance: HYDROCORTISONE
     Route: 058
  152. HYDROCORTISONE [Suspect]
     Active Substance: HYDROCORTISONE
     Route: 065
  153. HYDROCORTISONE [Suspect]
     Active Substance: HYDROCORTISONE
     Route: 061
  154. METHOTREXATE [Suspect]
     Active Substance: METHOTREXATE
     Indication: Rheumatoid arthritis
     Route: 048
  155. METHOTREXATE [Suspect]
     Active Substance: METHOTREXATE
     Indication: Psoriatic arthropathy
     Dosage: 20 MILLIGRAM, QD
     Route: 048
  156. METHOTREXATE [Suspect]
     Active Substance: METHOTREXATE
     Dosage: 25 MILLIGRAM, QD
     Route: 048
  157. METHOTREXATE [Suspect]
     Active Substance: METHOTREXATE
     Route: 048
  158. METHOTREXATE [Suspect]
     Active Substance: METHOTREXATE
     Route: 048
  159. METHOTREXATE [Suspect]
     Active Substance: METHOTREXATE
     Dosage: 50 MILLIGRAM, QD
     Route: 048
  160. METHOTREXATE [Suspect]
     Active Substance: METHOTREXATE
     Route: 048
  161. METHOTREXATE [Suspect]
     Active Substance: METHOTREXATE
     Route: 048
  162. METHOTREXATE [Suspect]
     Active Substance: METHOTREXATE
     Dosage: 20 MILLIGRAM, QD
     Route: 048
  163. METHOTREXATE [Suspect]
     Active Substance: METHOTREXATE
     Dosage: 25 MILLIGRAM, QWK
     Route: 048
  164. METHOTREXATE [Suspect]
     Active Substance: METHOTREXATE
     Dosage: 25 MILLIGRAM, QWK
     Route: 048
  165. METHOTREXATE [Suspect]
     Active Substance: METHOTREXATE
     Dosage: 25 MILLIGRAM, QWK
     Route: 048
  166. METHOTREXATE [Suspect]
     Active Substance: METHOTREXATE
     Dosage: 15 MILLIGRAM, QD
     Route: 048
  167. METHOTREXATE [Suspect]
     Active Substance: METHOTREXATE
     Route: 048
  168. METHOTREXATE [Suspect]
     Active Substance: METHOTREXATE
     Route: 048
  169. METHOTREXATE [Suspect]
     Active Substance: METHOTREXATE
     Route: 048
  170. METHOTREXATE [Suspect]
     Active Substance: METHOTREXATE
     Route: 051
  171. METHOTREXATE [Suspect]
     Active Substance: METHOTREXATE
     Dosage: UNK, QD
     Route: 048
  172. METHOTREXATE [Suspect]
     Active Substance: METHOTREXATE
     Route: 065
  173. METHOTREXATE [Suspect]
     Active Substance: METHOTREXATE
     Dosage: 1 DOSAGE FORM, QD
     Route: 048
  174. METHOTREXATE [Suspect]
     Active Substance: METHOTREXATE
     Dosage: 15 MILLIGRAM, QWK
     Route: 048
  175. METHOTREXATE [Suspect]
     Active Substance: METHOTREXATE
     Dosage: 25 MILLIGRAM, QWK
     Route: 048
  176. METHOTREXATE [Suspect]
     Active Substance: METHOTREXATE
     Dosage: 25 MILLIGRAM, QWK
     Route: 013
  177. METHOTREXATE [Suspect]
     Active Substance: METHOTREXATE
     Dosage: 1 DOSAGE FORM, QD
     Route: 048
  178. METHOTREXATE [Suspect]
     Active Substance: METHOTREXATE
     Route: 048
  179. METHOTREXATE [Suspect]
     Active Substance: METHOTREXATE
     Dosage: 2 DOSAGE FORM, QD
     Route: 048
  180. METHOTREXATE [Suspect]
     Active Substance: METHOTREXATE
     Dosage: 20 MILLIGRAM, QWK
     Route: 013
  181. METHOTREXATE [Suspect]
     Active Substance: METHOTREXATE
     Dosage: 20 MILLIGRAM, QD
     Route: 048
  182. METHOTREXATE [Suspect]
     Active Substance: METHOTREXATE
     Dosage: 25 MILLIGRAM, QD
     Route: 013
  183. METHOTREXATE [Suspect]
     Active Substance: METHOTREXATE
     Dosage: 25 MILLIGRAM, QD
     Route: 048
  184. METHOTREXATE [Suspect]
     Active Substance: METHOTREXATE
     Route: 058
  185. METHOTREXATE [Suspect]
     Active Substance: METHOTREXATE
     Dosage: 1 GRAM, QD
     Route: 048
  186. METHOTREXATE [Suspect]
     Active Substance: METHOTREXATE
     Route: 065
  187. METHOTREXATE [Suspect]
     Active Substance: METHOTREXATE
     Route: 058
  188. METHOTREXATE [Suspect]
     Active Substance: METHOTREXATE
     Dosage: 15 MILLIGRAM, Q12H
     Route: 048
  189. METHOTREXATE [Suspect]
     Active Substance: METHOTREXATE
     Dosage: 20 MILLIGRAM, QWK
     Route: 048
  190. METHOTREXATE [Suspect]
     Active Substance: METHOTREXATE
     Route: 065
  191. METHOTREXATE [Suspect]
     Active Substance: METHOTREXATE
     Dosage: 20 MILLIGRAM, QD
     Route: 065
  192. METHOTREXATE [Suspect]
     Active Substance: METHOTREXATE
     Dosage: 20 MILLIGRAM, QD
     Route: 048
  193. METHOTREXATE [Suspect]
     Active Substance: METHOTREXATE
     Route: 058
  194. METHOTREXATE [Suspect]
     Active Substance: METHOTREXATE
     Dosage: 20 MILLIGRAM, QD
     Route: 048
  195. METHOTREXATE [Suspect]
     Active Substance: METHOTREXATE
     Dosage: 2 GRAM, QD
     Route: 048
  196. METHOTREXATE [Suspect]
     Active Substance: METHOTREXATE
     Route: 013
  197. METHOTREXATE [Suspect]
     Active Substance: METHOTREXATE
     Route: 048
  198. METHOTREXATE [Suspect]
     Active Substance: METHOTREXATE
     Route: 048
  199. METHOTREXATE [Suspect]
     Active Substance: METHOTREXATE
     Route: 048
  200. METHOTREXATE [Suspect]
     Active Substance: METHOTREXATE
     Route: 048
  201. METHOTREXATE [Suspect]
     Active Substance: METHOTREXATE
     Route: 016
  202. METHOTREXATE [Suspect]
     Active Substance: METHOTREXATE
     Route: 048
  203. ALENDRONIC ACID [Suspect]
     Active Substance: ALENDRONIC ACID
     Indication: Rheumatoid arthritis
     Route: 065
  204. ALENDRONIC ACID [Suspect]
     Active Substance: ALENDRONIC ACID
     Route: 048
  205. ALENDRONIC ACID [Suspect]
     Active Substance: ALENDRONIC ACID
     Route: 048
  206. ALENDRONIC ACID [Suspect]
     Active Substance: ALENDRONIC ACID
     Route: 016
  207. ALENDRONIC ACID [Suspect]
     Active Substance: ALENDRONIC ACID
     Route: 065
  208. ALENDRONIC ACID [Suspect]
     Active Substance: ALENDRONIC ACID
     Route: 048
  209. NAPROXEN SODIUM [Suspect]
     Active Substance: NAPROXEN SODIUM
     Indication: Rheumatoid arthritis
     Route: 065
  210. NAPROXEN SODIUM [Suspect]
     Active Substance: NAPROXEN SODIUM
     Route: 065
  211. NAPROXEN [Suspect]
     Active Substance: NAPROXEN
     Indication: Rheumatoid arthritis
     Dosage: 2 DOSAGE FORM, Q12H
     Route: 065
  212. NAPROXEN [Suspect]
     Active Substance: NAPROXEN
     Dosage: 1 DOSAGE FORM, Q12H
     Route: 065
  213. NAPROXEN [Suspect]
     Active Substance: NAPROXEN
     Route: 065
  214. NAPROXEN [Suspect]
     Active Substance: NAPROXEN
     Route: 065
  215. TRAZODONE [Suspect]
     Active Substance: TRAZODONE HYDROCHLORIDE
     Indication: Product used for unknown indication
     Dosage: 2 DOSAGE FORM, QD
     Route: 065
  216. CETIRIZINE [Suspect]
     Active Substance: CETIRIZINE HYDROCHLORIDE
     Indication: Product used for unknown indication
     Dosage: 1 DOSAGE FORM, QD
     Route: 065
  217. CETIRIZINE [Suspect]
     Active Substance: CETIRIZINE HYDROCHLORIDE
     Dosage: 3 DOSAGE FORM, QD
     Route: 065
  218. CETIRIZINE [Suspect]
     Active Substance: CETIRIZINE HYDROCHLORIDE
     Route: 065
  219. CETIRIZINE HYDROCHLORIDE [Suspect]
     Active Substance: CETIRIZINE HYDROCHLORIDE
     Indication: Rheumatoid arthritis
     Route: 048
  220. CETIRIZINE HYDROCHLORIDE [Suspect]
     Active Substance: CETIRIZINE HYDROCHLORIDE
     Indication: Off label use
     Route: 016
  221. CETIRIZINE HYDROCHLORIDE [Suspect]
     Active Substance: CETIRIZINE HYDROCHLORIDE
     Route: 048
  222. CETIRIZINE HYDROCHLORIDE [Suspect]
     Active Substance: CETIRIZINE HYDROCHLORIDE
     Route: 065
  223. CETIRIZINE HYDROCHLORIDE [Suspect]
     Active Substance: CETIRIZINE HYDROCHLORIDE
     Dosage: 25 MILLIGRAM, QWK
     Route: 048
  224. CETIRIZINE HYDROCHLORIDE [Suspect]
     Active Substance: CETIRIZINE HYDROCHLORIDE
     Route: 065
  225. CETIRIZINE HYDROCHLORIDE [Suspect]
     Active Substance: CETIRIZINE HYDROCHLORIDE
     Route: 065
  226. CETIRIZINE HYDROCHLORIDE [Suspect]
     Active Substance: CETIRIZINE HYDROCHLORIDE
     Route: 058
  227. CETIRIZINE HYDROCHLORIDE [Suspect]
     Active Substance: CETIRIZINE HYDROCHLORIDE
     Route: 058
  228. CETIRIZINE HYDROCHLORIDE [Suspect]
     Active Substance: CETIRIZINE HYDROCHLORIDE
     Route: 065
  229. CETIRIZINE HYDROCHLORIDE [Suspect]
     Active Substance: CETIRIZINE HYDROCHLORIDE
     Route: 065
  230. CETIRIZINE HYDROCHLORIDE [Suspect]
     Active Substance: CETIRIZINE HYDROCHLORIDE
     Route: 065
  231. CETIRIZINE HYDROCHLORIDE [Suspect]
     Active Substance: CETIRIZINE HYDROCHLORIDE
     Route: 016
  232. CETIRIZINE HYDROCHLORIDE [Suspect]
     Active Substance: CETIRIZINE HYDROCHLORIDE
     Route: 065
  233. CETIRIZINE HYDROCHLORIDE [Suspect]
     Active Substance: CETIRIZINE HYDROCHLORIDE
     Route: 065
  234. CETIRIZINE HYDROCHLORIDE [Suspect]
     Active Substance: CETIRIZINE HYDROCHLORIDE
     Dosage: 10 MILLIGRAM, QD
     Route: 048
  235. CETIRIZINE HYDROCHLORIDE [Suspect]
     Active Substance: CETIRIZINE HYDROCHLORIDE
     Dosage: 10 MILLIGRAM, QD
     Route: 065
  236. CETIRIZINE HYDROCHLORIDE [Suspect]
     Active Substance: CETIRIZINE HYDROCHLORIDE
     Route: 065
  237. CETIRIZINE HYDROCHLORIDE [Suspect]
     Active Substance: CETIRIZINE HYDROCHLORIDE
     Route: 048
  238. CETIRIZINE HYDROCHLORIDE [Suspect]
     Active Substance: CETIRIZINE HYDROCHLORIDE
     Route: 065
  239. CETIRIZINE HYDROCHLORIDE [Suspect]
     Active Substance: CETIRIZINE HYDROCHLORIDE
     Route: 065
  240. CETIRIZINE HYDROCHLORIDE [Suspect]
     Active Substance: CETIRIZINE HYDROCHLORIDE
     Route: 065
  241. DOMPERIDONE\PANTOPRAZOLE SODIUM [Suspect]
     Active Substance: DOMPERIDONE\PANTOPRAZOLE SODIUM
     Indication: Product used for unknown indication
     Route: 065
  242. TOPIRAMATE [Suspect]
     Active Substance: TOPIRAMATE
     Indication: Migraine
     Dosage: 1 MG, QD
     Route: 065
  243. TOPIRAMATE [Suspect]
     Active Substance: TOPIRAMATE
     Dosage: 3 MILLIGRAM, QD
     Route: 065
  244. TOPIRAMATE [Suspect]
     Active Substance: TOPIRAMATE
     Route: 048
  245. TOPIRAMATE [Suspect]
     Active Substance: TOPIRAMATE
     Route: 065
  246. TOPIRAMATE [Suspect]
     Active Substance: TOPIRAMATE
     Dosage: 25 MILLIGRAM, QD
     Route: 065
  247. TOPIRAMATE [Suspect]
     Active Substance: TOPIRAMATE
     Route: 065
  248. TOPIRAMATE [Suspect]
     Active Substance: TOPIRAMATE
     Route: 065
  249. ACETAMINOPHEN [Suspect]
     Active Substance: ACETAMINOPHEN
     Indication: Product used for unknown indication
     Route: 065
  250. ACETAMINOPHEN [Suspect]
     Active Substance: ACETAMINOPHEN
     Route: 065
  251. ACETAMINOPHEN [Suspect]
     Active Substance: ACETAMINOPHEN
     Route: 065
  252. ACETAMINOPHEN [Suspect]
     Active Substance: ACETAMINOPHEN
     Route: 065
  253. ACTEMRA [Suspect]
     Active Substance: TOCILIZUMAB
     Indication: Rheumatoid arthritis
     Route: 058
  254. ACTEMRA [Suspect]
     Active Substance: TOCILIZUMAB
     Route: 058
  255. ACTEMRA [Suspect]
     Active Substance: TOCILIZUMAB
     Route: 065
  256. ACTEMRA [Suspect]
     Active Substance: TOCILIZUMAB
     Route: 058
  257. ACTEMRA [Suspect]
     Active Substance: TOCILIZUMAB
     Route: 040
  258. ACTEMRA [Suspect]
     Active Substance: TOCILIZUMAB
     Route: 065
  259. ACTEMRA [Suspect]
     Active Substance: TOCILIZUMAB
     Route: 065
  260. ACTEMRA [Suspect]
     Active Substance: TOCILIZUMAB
     Route: 061
  261. ACTEMRA [Suspect]
     Active Substance: TOCILIZUMAB
     Route: 058
  262. ACTEMRA [Suspect]
     Active Substance: TOCILIZUMAB
     Route: 040
  263. ACTEMRA [Suspect]
     Active Substance: TOCILIZUMAB
     Route: 040
  264. ACTEMRA [Suspect]
     Active Substance: TOCILIZUMAB
     Route: 040
  265. ACTEMRA [Suspect]
     Active Substance: TOCILIZUMAB
     Route: 065
  266. ACTEMRA [Suspect]
     Active Substance: TOCILIZUMAB
     Route: 016
  267. ACTEMRA [Suspect]
     Active Substance: TOCILIZUMAB
     Route: 040
  268. PREDNISONE [Suspect]
     Active Substance: PREDNISONE
     Indication: Rheumatoid arthritis
     Route: 048
  269. PREDNISONE [Suspect]
     Active Substance: PREDNISONE
     Indication: Product used for unknown indication
     Route: 048
  270. PREDNISONE [Suspect]
     Active Substance: PREDNISONE
     Route: 065
  271. PREDNISONE [Suspect]
     Active Substance: PREDNISONE
     Route: 065
  272. PREDNISONE [Suspect]
     Active Substance: PREDNISONE
     Route: 065
  273. PREDNISONE [Suspect]
     Active Substance: PREDNISONE
     Route: 065
  274. APREPITANT [Suspect]
     Active Substance: APREPITANT
     Indication: Product used for unknown indication
     Route: 040
  275. ARAVA [Suspect]
     Active Substance: LEFLUNOMIDE
     Indication: Rheumatoid arthritis
     Route: 065
  276. ARAVA [Suspect]
     Active Substance: LEFLUNOMIDE
     Route: 048
  277. ARAVA [Suspect]
     Active Substance: LEFLUNOMIDE
     Route: 065
  278. ARAVA [Suspect]
     Active Substance: LEFLUNOMIDE
     Dosage: 20 MILLIGRAM, QD
     Route: 048
  279. ARAVA [Suspect]
     Active Substance: LEFLUNOMIDE
     Route: 048
  280. ARAVA [Suspect]
     Active Substance: LEFLUNOMIDE
     Route: 048
  281. ARAVA [Suspect]
     Active Substance: LEFLUNOMIDE
     Route: 048
  282. CALCIUM CARBONATE [Suspect]
     Active Substance: CALCIUM CARBONATE
     Indication: Product used for unknown indication
     Route: 065
  283. CALCIUM CARBONATE [Suspect]
     Active Substance: CALCIUM CARBONATE
     Route: 065
  284. CALCIUM CHLORIDE [Suspect]
     Active Substance: CALCIUM CHLORIDE
     Indication: Product used for unknown indication
     Route: 065
  285. CALCIUM GLUCONATE [Suspect]
     Active Substance: CALCIUM GLUCONATE
     Indication: Product used for unknown indication
     Route: 065
  286. CALCIUM LACTATE [Suspect]
     Active Substance: CALCIUM LACTATE
     Indication: Product used for unknown indication
     Route: 065
  287. CELEBREX [Suspect]
     Active Substance: CELECOXIB
     Indication: Rheumatoid arthritis
     Route: 065
  288. CELEBREX [Suspect]
     Active Substance: CELECOXIB
     Indication: Arthritis
     Route: 065
  289. CELEBREX [Suspect]
     Active Substance: CELECOXIB
     Indication: Product used for unknown indication
     Route: 048
  290. CELEBREX [Suspect]
     Active Substance: CELECOXIB
     Dosage: UNK UNK, QD/ CAPSULES
     Route: 048
  291. CELEBREX [Suspect]
     Active Substance: CELECOXIB
     Dosage: UNK UNK, QD/ CAPSULES
     Route: 048
  292. CELEBREX [Suspect]
     Active Substance: CELECOXIB
     Dosage: 2 DOSAGE FORM, QD
     Route: 065
  293. CELEBREX [Suspect]
     Active Substance: CELECOXIB
     Dosage: 1 DOSAGE FORM, QD
     Route: 065
  294. CELEBREX [Suspect]
     Active Substance: CELECOXIB
     Dosage: 2 DOSAGE FORM, QD
     Route: 065
  295. CERTOLIZUMAB PEGOL [Suspect]
     Active Substance: CERTOLIZUMAB PEGOL
     Indication: Psoriasis
     Route: 058
  296. CERTOLIZUMAB PEGOL [Suspect]
     Active Substance: CERTOLIZUMAB PEGOL
     Indication: Rheumatoid arthritis
     Route: 065
  297. CERTOLIZUMAB PEGOL [Suspect]
     Active Substance: CERTOLIZUMAB PEGOL
     Route: 058
  298. CETRIMIDE [Suspect]
     Active Substance: CETRIMIDE
     Indication: Product used for unknown indication
     Route: 065
  299. CIMZIA [Suspect]
     Active Substance: CERTOLIZUMAB PEGOL
     Indication: Rheumatoid arthritis
     Route: 058
  300. CIMZIA [Suspect]
     Active Substance: CERTOLIZUMAB PEGOL
     Indication: Psoriasis
     Route: 058
  301. CIMZIA [Suspect]
     Active Substance: CERTOLIZUMAB PEGOL
     Route: 058
  302. CIMZIA [Suspect]
     Active Substance: CERTOLIZUMAB PEGOL
     Route: 058
  303. CIMZIA [Suspect]
     Active Substance: CERTOLIZUMAB PEGOL
     Route: 058
  304. CIMZIA [Suspect]
     Active Substance: CERTOLIZUMAB PEGOL
     Route: 065
  305. CIMZIA [Suspect]
     Active Substance: CERTOLIZUMAB PEGOL
     Route: 058
  306. CIMZIA [Suspect]
     Active Substance: CERTOLIZUMAB PEGOL
     Route: 065
  307. CIMZIA [Suspect]
     Active Substance: CERTOLIZUMAB PEGOL
     Route: 048
  308. CIMZIA [Suspect]
     Active Substance: CERTOLIZUMAB PEGOL
     Route: 065
  309. CIMZIA [Suspect]
     Active Substance: CERTOLIZUMAB PEGOL
     Route: 058
  310. CIMZIA [Suspect]
     Active Substance: CERTOLIZUMAB PEGOL
     Route: 058
  311. CIMZIA [Suspect]
     Active Substance: CERTOLIZUMAB PEGOL
     Route: 058
  312. CORTISONE ACETATE [Suspect]
     Active Substance: CORTISONE ACETATE
     Indication: Rheumatoid arthritis
     Route: 061
  313. CORTISONE ACETATE [Suspect]
     Active Substance: CORTISONE ACETATE
     Route: 058
  314. CORTISONE ACETATE [Suspect]
     Active Substance: CORTISONE ACETATE
     Route: 065
  315. DESOXIMETASONE [Suspect]
     Active Substance: DESOXIMETASONE
     Indication: Rheumatoid arthritis
     Route: 065
  316. DESOXIMETASONE [Suspect]
     Active Substance: DESOXIMETASONE
     Route: 065
  317. DESOXIMETASONE [Suspect]
     Active Substance: DESOXIMETASONE
     Route: 048
  318. DESOXIMETASONE [Suspect]
     Active Substance: DESOXIMETASONE
     Route: 048
  319. DESOXIMETASONE [Suspect]
     Active Substance: DESOXIMETASONE
     Route: 048
  320. DESOXIMETASONE [Suspect]
     Active Substance: DESOXIMETASONE
     Route: 065
  321. DESOXIMETASONE [Suspect]
     Active Substance: DESOXIMETASONE
     Route: 058
  322. DESOXIMETASONE [Suspect]
     Active Substance: DESOXIMETASONE
     Route: 061
  323. DILTIAZEM HYDROCHLORIDE [Suspect]
     Active Substance: DILTIAZEM HYDROCHLORIDE
     Indication: Product used for unknown indication
     Route: 065
  324. DILTIAZEM HYDROCHLORIDE [Suspect]
     Active Substance: DILTIAZEM HYDROCHLORIDE
     Route: 002
  325. DOXYCYCLINE HYCLATE [Suspect]
     Active Substance: DOXYCYCLINE HYCLATE
     Indication: Product used for unknown indication
     Route: 065
  326. FLUMETHASONE PIVALATE [Suspect]
     Active Substance: FLUMETHASONE PIVALATE
     Indication: Rheumatoid arthritis
     Route: 058
  327. FLUMETHASONE PIVALATE [Suspect]
     Active Substance: FLUMETHASONE PIVALATE
     Indication: Product used for unknown indication
     Route: 065
  328. FLUMETHASONE PIVALATE [Suspect]
     Active Substance: FLUMETHASONE PIVALATE
     Indication: Drug ineffective
     Route: 065
  329. FLUMETHASONE PIVALATE [Suspect]
     Active Substance: FLUMETHASONE PIVALATE
     Route: 065
  330. FLUMETHASONE PIVALATE [Suspect]
     Active Substance: FLUMETHASONE PIVALATE
     Route: 065
  331. FOSAMAX [Suspect]
     Active Substance: ALENDRONATE SODIUM
     Indication: Rheumatoid arthritis
     Route: 048
  332. FOSAMAX [Suspect]
     Active Substance: ALENDRONATE SODIUM
     Indication: Product used for unknown indication
     Route: 048
  333. FOSAMAX [Suspect]
     Active Substance: ALENDRONATE SODIUM
     Route: 065
  334. FOSAMAX [Suspect]
     Active Substance: ALENDRONATE SODIUM
     Route: 058
  335. FOSAMAX [Suspect]
     Active Substance: ALENDRONATE SODIUM
     Route: 016
  336. FOSAMAX [Suspect]
     Active Substance: ALENDRONATE SODIUM
     Route: 065
  337. GOLIMUMAB [Suspect]
     Active Substance: GOLIMUMAB
     Indication: Product used for unknown indication
     Route: 065
  338. GOLIMUMAB [Suspect]
     Active Substance: GOLIMUMAB
     Indication: Rheumatoid arthritis
     Route: 058
  339. GOLIMUMAB [Suspect]
     Active Substance: GOLIMUMAB
     Indication: Prostatic specific antigen
  340. HUMIRA [Suspect]
     Active Substance: ADALIMUMAB
     Indication: Rheumatoid arthritis
     Route: 065
  341. HUMIRA [Suspect]
     Active Substance: ADALIMUMAB
     Indication: Psoriatic arthropathy
     Route: 065
  342. HUMIRA [Suspect]
     Active Substance: ADALIMUMAB
     Route: 058
  343. HUMIRA [Suspect]
     Active Substance: ADALIMUMAB
     Dosage: 40 MILLIGRAM, QD
     Route: 058
  344. HUMIRA [Suspect]
     Active Substance: ADALIMUMAB
     Dosage: 4 MILLIGRAM, QD
     Route: 065
  345. HUMIRA [Suspect]
     Active Substance: ADALIMUMAB
     Route: 058
  346. HUMIRA [Suspect]
     Active Substance: ADALIMUMAB
     Route: 065
  347. HUMIRA [Suspect]
     Active Substance: ADALIMUMAB
     Route: 058
  348. HUMIRA [Suspect]
     Active Substance: ADALIMUMAB
     Route: 058
  349. HUMIRA [Suspect]
     Active Substance: ADALIMUMAB
     Route: 058
  350. HUMIRA [Suspect]
     Active Substance: ADALIMUMAB
     Route: 058
  351. HYDROXYCHLOROQUINE [Suspect]
     Active Substance: HYDROXYCHLOROQUINE
     Indication: Rheumatoid arthritis
     Dosage: 400 MILLIGRAM, QD
     Route: 065
  352. HYDROXYCHLOROQUINE [Suspect]
     Active Substance: HYDROXYCHLOROQUINE
     Dosage: 400 MILLIGRAM, QD
     Route: 048
  353. HYDROXYCHLOROQUINE [Suspect]
     Active Substance: HYDROXYCHLOROQUINE
     Dosage: 400 MILLIGRAM, QD
     Route: 048
  354. HYDROXYCHLOROQUINE [Suspect]
     Active Substance: HYDROXYCHLOROQUINE
     Dosage: 40 MILLIGRAM, QD
     Route: 066
  355. HYDROXYCHLOROQUINE [Suspect]
     Active Substance: HYDROXYCHLOROQUINE
     Dosage: 1 DOSAGE FORM, QD
     Route: 048
  356. HYDROXYCHLOROQUINE [Suspect]
     Active Substance: HYDROXYCHLOROQUINE
     Dosage: 40 MILLIGRAM, QD
     Route: 065
  357. HYDROXYCHLOROQUINE [Suspect]
     Active Substance: HYDROXYCHLOROQUINE
     Route: 048
  358. HYDROXYCHLOROQUINE [Suspect]
     Active Substance: HYDROXYCHLOROQUINE
     Route: 065
  359. HYDROXYCHLOROQUINE [Suspect]
     Active Substance: HYDROXYCHLOROQUINE
     Route: 048
  360. HYDROXYCHLOROQUINE [Suspect]
     Active Substance: HYDROXYCHLOROQUINE
     Route: 065
  361. HYDROXYCHLOROQUINE [Suspect]
     Active Substance: HYDROXYCHLOROQUINE
     Route: 048
  362. HYDROXYCHLOROQUINE [Suspect]
     Active Substance: HYDROXYCHLOROQUINE
     Route: 065
  363. HYDROXYCHLOROQUINE [Suspect]
     Active Substance: HYDROXYCHLOROQUINE
     Dosage: 400 MILLIGRAM, QD
     Route: 048
  364. HYDROXYCHLOROQUINE [Suspect]
     Active Substance: HYDROXYCHLOROQUINE
     Dosage: 400 MILLIGRAM, QD
     Route: 065
  365. HYDROXYCHLOROQUINE [Suspect]
     Active Substance: HYDROXYCHLOROQUINE
     Route: 048
  366. HYDROXYCHLOROQUINE [Suspect]
     Active Substance: HYDROXYCHLOROQUINE
     Dosage: 40 MILLIGRAM, QD
     Route: 065
  367. HYDROXYCHLOROQUINE [Suspect]
     Active Substance: HYDROXYCHLOROQUINE
     Dosage: 40 MILLIGRAM, QD
     Route: 048
  368. HYDROXYCHLOROQUINE [Suspect]
     Active Substance: HYDROXYCHLOROQUINE
     Route: 048
  369. HYDROXYCHLOROQUINE [Suspect]
     Active Substance: HYDROXYCHLOROQUINE
     Route: 065
  370. HYDROXYCHLOROQUINE [Suspect]
     Active Substance: HYDROXYCHLOROQUINE
     Dosage: 400 MILLIGRAM, QD
     Route: 065
  371. HYDROXYCHLOROQUINE [Suspect]
     Active Substance: HYDROXYCHLOROQUINE
     Route: 065
  372. HYDROXYCHLOROQUINE [Suspect]
     Active Substance: HYDROXYCHLOROQUINE
     Dosage: 400 MILLIGRAM, QD
     Route: 065
  373. HYDROXYCHLOROQUINE SULFATE [Suspect]
     Active Substance: HYDROXYCHLOROQUINE SULFATE
     Indication: Rheumatoid arthritis
     Dosage: 400 MILLIGRAM, QD
     Route: 066
  374. HYDROXYCHLOROQUINE SULFATE [Suspect]
     Active Substance: HYDROXYCHLOROQUINE SULFATE
     Dosage: 400 MILLIGRAM, QD
     Route: 048
  375. HYDROXYCHLOROQUINE SULFATE [Suspect]
     Active Substance: HYDROXYCHLOROQUINE SULFATE
     Dosage: 40 MILLIGRAM, QD
     Route: 048
  376. HYDROXYCHLOROQUINE SULFATE [Suspect]
     Active Substance: HYDROXYCHLOROQUINE SULFATE
     Dosage: 40 MILLIGRAM, QD
     Route: 066
  377. HYDROXYCHLOROQUINE SULFATE [Suspect]
     Active Substance: HYDROXYCHLOROQUINE SULFATE
     Dosage: 400 MILLIGRAM, QD
     Route: 048
  378. HYDROXYCHLOROQUINE SULFATE [Suspect]
     Active Substance: HYDROXYCHLOROQUINE SULFATE
     Route: 048
  379. HYDROXYCHLOROQUINE SULFATE [Suspect]
     Active Substance: HYDROXYCHLOROQUINE SULFATE
     Route: 065
  380. HYDROXYCHLOROQUINE SULFATE [Suspect]
     Active Substance: HYDROXYCHLOROQUINE SULFATE
     Route: 065
  381. HYDROXYCHLOROQUINE SULFATE [Suspect]
     Active Substance: HYDROXYCHLOROQUINE SULFATE
     Dosage: 420 MILLIGRAM, QD
     Route: 048
  382. HYDROXYCHLOROQUINE SULFATE [Suspect]
     Active Substance: HYDROXYCHLOROQUINE SULFATE
     Dosage: 420 MILLIGRAM, QD
     Route: 065
  383. HYDROXYCHLOROQUINE SULFATE [Suspect]
     Active Substance: HYDROXYCHLOROQUINE SULFATE
     Route: 065
  384. HYDROXYCHLOROQUINE SULFATE [Suspect]
     Active Substance: HYDROXYCHLOROQUINE SULFATE
     Route: 065
  385. HYDROXYCHLOROQUINE SULFATE [Suspect]
     Active Substance: HYDROXYCHLOROQUINE SULFATE
     Route: 058
  386. HYDROXYCHLOROQUINE SULFATE [Suspect]
     Active Substance: HYDROXYCHLOROQUINE SULFATE
     Route: 048
  387. HYDROXYCHLOROQUINE SULFATE [Suspect]
     Active Substance: HYDROXYCHLOROQUINE SULFATE
     Route: 065
  388. HYDROXYCHLOROQUINE SULFATE [Suspect]
     Active Substance: HYDROXYCHLOROQUINE SULFATE
     Route: 065
  389. HYRIMOZ [Suspect]
     Active Substance: ADALIMUMAB-ADAZ
     Indication: Rheumatoid arthritis
     Route: 058
  390. ISOPROPYL ALCOHOL [Suspect]
     Active Substance: ISOPROPYL ALCOHOL
     Indication: Product used for unknown indication
     Route: 061
  391. ISOPROPYL ALCOHOL [Suspect]
     Active Substance: ISOPROPYL ALCOHOL
     Route: 065
  392. KEVZARA [Suspect]
     Active Substance: SARILUMAB
     Indication: Rheumatoid arthritis
     Route: 065
  393. LYRICA [Suspect]
     Active Substance: PREGABALIN
     Indication: Product used for unknown indication
     Route: 065
  394. ORENCIA [Suspect]
     Active Substance: ABATACEPT
     Indication: Rheumatoid arthritis
     Route: 040
  395. ORENCIA [Suspect]
     Active Substance: ABATACEPT
     Route: 058
  396. ORENCIA [Suspect]
     Active Substance: ABATACEPT
     Route: 040
  397. ORENCIA [Suspect]
     Active Substance: ABATACEPT
     Route: 040
  398. ORENCIA [Suspect]
     Active Substance: ABATACEPT
     Route: 058
  399. ORENCIA [Suspect]
     Active Substance: ABATACEPT
     Route: 065
  400. PHENYLEPHRINE HYDROCHLORIDE [Suspect]
     Active Substance: PHENYLEPHRINE HYDROCHLORIDE
     Indication: Rheumatoid arthritis
     Route: 030
  401. PHENYLEPHRINE HYDROCHLORIDE [Suspect]
     Active Substance: PHENYLEPHRINE HYDROCHLORIDE
     Route: 065
  402. PHENYLEPHRINE HYDROCHLORIDE [Suspect]
     Active Substance: PHENYLEPHRINE HYDROCHLORIDE
     Route: 065
  403. PHENYLEPHRINE HYDROCHLORIDE [Suspect]
     Active Substance: PHENYLEPHRINE HYDROCHLORIDE
     Route: 065
  404. PHTHALYLSULFATHIAZOLE [Suspect]
     Active Substance: PHTHALYLSULFATHIAZOLE
     Indication: Rheumatoid arthritis
     Route: 040
  405. PREDNISONE [Suspect]
     Active Substance: PREDNISONE
     Indication: Rheumatoid arthritis
     Route: 048
  406. PREDNISONE [Suspect]
     Active Substance: PREDNISONE
     Indication: Condition aggravated
     Route: 048
  407. PREDNISONE [Suspect]
     Active Substance: PREDNISONE
     Route: 065
  408. PREDNISONE [Suspect]
     Active Substance: PREDNISONE
     Route: 048
  409. PSEUDOEPHEDRINE HYDROCHLORIDE [Suspect]
     Active Substance: PSEUDOEPHEDRINE HYDROCHLORIDE
     Indication: Rheumatoid arthritis
     Route: 065
  410. PSEUDOEPHEDRINE HYDROCHLORIDE [Suspect]
     Active Substance: PSEUDOEPHEDRINE HYDROCHLORIDE
     Indication: Product used for unknown indication
     Route: 065
  411. PSEUDOEPHEDRINE HYDROCHLORIDE [Suspect]
     Active Substance: PSEUDOEPHEDRINE HYDROCHLORIDE
     Route: 065
  412. PSEUDOEPHEDRINE HYDROCHLORIDE [Suspect]
     Active Substance: PSEUDOEPHEDRINE HYDROCHLORIDE
     Route: 065
  413. CETIRIZINE HYDROCHLORIDE\PSEUDOEPHEDRINE HYDROCHLORIDE [Suspect]
     Active Substance: CETIRIZINE HYDROCHLORIDE\PSEUDOEPHEDRINE HYDROCHLORIDE
     Indication: Rheumatoid arthritis
     Route: 065
  414. CETIRIZINE HYDROCHLORIDE\PSEUDOEPHEDRINE HYDROCHLORIDE [Suspect]
     Active Substance: CETIRIZINE HYDROCHLORIDE\PSEUDOEPHEDRINE HYDROCHLORIDE
     Indication: Off label use
     Dosage: 10 MILLIGRAM, QD
     Route: 048
  415. CETIRIZINE HYDROCHLORIDE\PSEUDOEPHEDRINE HYDROCHLORIDE [Suspect]
     Active Substance: CETIRIZINE HYDROCHLORIDE\PSEUDOEPHEDRINE HYDROCHLORIDE
     Route: 065
  416. CETIRIZINE HYDROCHLORIDE\PSEUDOEPHEDRINE HYDROCHLORIDE [Suspect]
     Active Substance: CETIRIZINE HYDROCHLORIDE\PSEUDOEPHEDRINE HYDROCHLORIDE
     Route: 065
  417. CETIRIZINE HYDROCHLORIDE\PSEUDOEPHEDRINE HYDROCHLORIDE [Suspect]
     Active Substance: CETIRIZINE HYDROCHLORIDE\PSEUDOEPHEDRINE HYDROCHLORIDE
     Route: 065
  418. REMICADE [Suspect]
     Active Substance: INFLIXIMAB
     Indication: Rheumatoid arthritis
     Route: 040
  419. SIMPONI [Suspect]
     Active Substance: GOLIMUMAB
     Indication: Rheumatoid arthritis
     Route: 058
  420. SIMPONI [Suspect]
     Active Substance: GOLIMUMAB
     Indication: Prostatic specific antigen
     Route: 040
  421. SIMPONI [Suspect]
     Active Substance: GOLIMUMAB
     Route: 040
  422. SIMPONI [Suspect]
     Active Substance: GOLIMUMAB
     Dosage: 50 MILLIGRAM, QMO/ SOLUTION
     Route: 058
  423. SIMPONI [Suspect]
     Active Substance: GOLIMUMAB
     Route: 065
  424. SIMPONI [Suspect]
     Active Substance: GOLIMUMAB
     Route: 058
  425. SIMPONI [Suspect]
     Active Substance: GOLIMUMAB
     Route: 058
  426. SULFASALAZINE [Suspect]
     Active Substance: SULFASALAZINE
     Indication: Rheumatoid arthritis
     Route: 048
  427. SULFASALAZINE [Suspect]
     Active Substance: SULFASALAZINE
     Route: 048
  428. SULFASALAZINE [Suspect]
     Active Substance: SULFASALAZINE
     Route: 058
  429. SULFASALAZINE [Suspect]
     Active Substance: SULFASALAZINE
     Route: 048
  430. SULFASALAZINE [Suspect]
     Active Substance: SULFASALAZINE
     Route: 058
  431. SULFASALAZINE [Suspect]
     Active Substance: SULFASALAZINE
     Route: 048
  432. SULFASALAZINE [Suspect]
     Active Substance: SULFASALAZINE
     Route: 058
  433. SULFASALAZINE [Suspect]
     Active Substance: SULFASALAZINE
     Dosage: 1 GRAM, QD
     Route: 065
  434. SULFASALAZINE [Suspect]
     Active Substance: SULFASALAZINE
     Route: 048
  435. SULFASALAZINE [Suspect]
     Active Substance: SULFASALAZINE
     Route: 048
  436. SULFASALAZINE [Suspect]
     Active Substance: SULFASALAZINE
     Route: 065
  437. SULFASALAZINE [Suspect]
     Active Substance: SULFASALAZINE
     Route: 048
  438. SULFASALAZINE [Suspect]
     Active Substance: SULFASALAZINE
     Route: 058
  439. SULFASALAZINE [Suspect]
     Active Substance: SULFASALAZINE
     Route: 065
  440. SULFASALAZINE [Suspect]
     Active Substance: SULFASALAZINE
     Route: 048
  441. SULFASALAZINE [Suspect]
     Active Substance: SULFASALAZINE
     Route: 048
  442. SULFASALAZINE [Suspect]
     Active Substance: SULFASALAZINE
     Route: 048
  443. SULFASALAZINE [Suspect]
     Active Substance: SULFASALAZINE
     Route: 048
  444. SULFASALAZINE [Suspect]
     Active Substance: SULFASALAZINE
     Route: 065
  445. SULFASALAZINE [Suspect]
     Active Substance: SULFASALAZINE
     Route: 048
  446. SULFASALAZINE [Suspect]
     Active Substance: SULFASALAZINE
     Dosage: 5 MILLIGRAM, QWK
     Route: 048
  447. SULFASALAZINE [Suspect]
     Active Substance: SULFASALAZINE
     Route: 048
  448. SULFASALAZINE [Suspect]
     Active Substance: SULFASALAZINE
     Route: 065
  449. SULFASALAZINE [Suspect]
     Active Substance: SULFASALAZINE
     Dosage: 2 GRAM
     Route: 048
  450. SULFASALAZINE [Suspect]
     Active Substance: SULFASALAZINE
     Dosage: 300 MILLIGRAM, QD
     Route: 048
  451. SULFASALAZINE [Suspect]
     Active Substance: SULFASALAZINE
     Route: 065
  452. SULFASALAZINE [Suspect]
     Active Substance: SULFASALAZINE
     Route: 065
  453. SULFASALAZINE [Suspect]
     Active Substance: SULFASALAZINE
     Route: 065
  454. SULFASALAZINE [Suspect]
     Active Substance: SULFASALAZINE
     Dosage: 2 GRAM
     Route: 048
  455. SULFASALAZINE [Suspect]
     Active Substance: SULFASALAZINE
     Route: 048
  456. SULFASALAZINE [Suspect]
     Active Substance: SULFASALAZINE
     Route: 048
  457. SULFASALAZINE [Suspect]
     Active Substance: SULFASALAZINE
     Route: 048
  458. SULFASALAZINE [Suspect]
     Active Substance: SULFASALAZINE
     Route: 048
  459. SULFASALAZINE [Suspect]
     Active Substance: SULFASALAZINE
     Route: 048
  460. SULFASALAZINE [Suspect]
     Active Substance: SULFASALAZINE
     Dosage: 1 GRAM, QD
     Route: 065
  461. SULFASALAZINE [Suspect]
     Active Substance: SULFASALAZINE
     Route: 065
  462. SULFASALAZINE [Suspect]
     Active Substance: SULFASALAZINE
     Route: 065
  463. SULFASALAZINE [Suspect]
     Active Substance: SULFASALAZINE
     Route: 048
  464. SULFASALAZINE [Suspect]
     Active Substance: SULFASALAZINE
     Route: 065
  465. SULFASALAZINE [Suspect]
     Active Substance: SULFASALAZINE
     Route: 065
  466. SULFASALAZINE [Suspect]
     Active Substance: SULFASALAZINE
     Dosage: 300 MILLIGRAM, QD
     Route: 048
  467. SULFASALAZINE [Suspect]
     Active Substance: SULFASALAZINE
     Route: 065
  468. SULFASALAZINE [Suspect]
     Active Substance: SULFASALAZINE
     Route: 048
  469. SULFASALAZINE [Suspect]
     Active Substance: SULFASALAZINE
     Route: 048
  470. TOFACITINIB CITRATE [Suspect]
     Active Substance: TOFACITINIB CITRATE
     Indication: Rheumatoid arthritis
     Route: 065
  471. TOFACITINIB CITRATE [Suspect]
     Active Substance: TOFACITINIB CITRATE
     Indication: Psoriatic arthropathy
     Route: 065
  472. TOFACITINIB CITRATE [Suspect]
     Active Substance: TOFACITINIB CITRATE
     Route: 065
  473. TOFACITINIB CITRATE [Suspect]
     Active Substance: TOFACITINIB CITRATE
     Route: 065
  474. TOFACITINIB CITRATE [Suspect]
     Active Substance: TOFACITINIB CITRATE
     Dosage: 5 MILLIGRAM, QWK
     Route: 065
  475. TOFACITINIB CITRATE [Suspect]
     Active Substance: TOFACITINIB CITRATE
     Route: 065
  476. VITAMIN C [Suspect]
     Active Substance: ASCORBIC ACID
     Indication: Product used for unknown indication
     Route: 065
  477. PREDNISONE [Suspect]
     Active Substance: PREDNISONE
     Indication: Rheumatoid arthritis
     Route: 048
  478. XELJANZ [Suspect]
     Active Substance: TOFACITINIB CITRATE
     Indication: Rheumatoid arthritis
     Route: 065
  479. XELJANZ [Suspect]
     Active Substance: TOFACITINIB CITRATE
     Route: 048
  480. XELJANZ [Suspect]
     Active Substance: TOFACITINIB CITRATE
     Route: 048
  481. XELJANZ [Suspect]
     Active Substance: TOFACITINIB CITRATE
     Route: 065
  482. XELJANZ [Suspect]
     Active Substance: TOFACITINIB CITRATE
     Route: 048
  483. XELJANZ [Suspect]
     Active Substance: TOFACITINIB CITRATE
     Route: 065
  484. XELJANZ [Suspect]
     Active Substance: TOFACITINIB CITRATE
     Dosage: 5 MILLIGRAM, QWK
     Route: 048
  485. XELJANZ [Suspect]
     Active Substance: TOFACITINIB CITRATE
     Route: 065
  486. XELJANZ [Suspect]
     Active Substance: TOFACITINIB CITRATE
     Route: 048
  487. XELJANZ [Suspect]
     Active Substance: TOFACITINIB CITRATE
     Route: 065
  488. XELJANZ [Suspect]
     Active Substance: TOFACITINIB CITRATE
     Route: 065
  489. XELJANZ [Suspect]
     Active Substance: TOFACITINIB CITRATE
     Route: 065
  490. XELJANZ [Suspect]
     Active Substance: TOFACITINIB CITRATE
     Route: 065
  491. CALCIUM GLUBIONATE [Suspect]
     Active Substance: CALCIUM GLUBIONATE
     Indication: Product used for unknown indication
     Route: 016
  492. CALCIUM GLUBIONATE [Suspect]
     Active Substance: CALCIUM GLUBIONATE
     Route: 061
  493. CALCIUM GLUBIONATE [Suspect]
     Active Substance: CALCIUM GLUBIONATE
     Route: 065
  494. CALCIUM GLUBIONATE [Suspect]
     Active Substance: CALCIUM GLUBIONATE
     Route: 065
  495. CALCIUM GLUBIONATE [Suspect]
     Active Substance: CALCIUM GLUBIONATE
     Route: 065
  496. PANTOPRAZOLE SODIUM [Suspect]
     Active Substance: PANTOPRAZOLE SODIUM
     Indication: Product used for unknown indication
     Route: 065
  497. PANTOPRAZOLE SODIUM [Suspect]
     Active Substance: PANTOPRAZOLE SODIUM
     Indication: Dyspepsia
     Route: 065
  498. PANTOPRAZOLE SODIUM [Suspect]
     Active Substance: PANTOPRAZOLE SODIUM
     Route: 048
  499. PANTOPRAZOLE SODIUM [Suspect]
     Active Substance: PANTOPRAZOLE SODIUM
     Route: 065
  500. PANTOPRAZOLE SODIUM [Suspect]
     Active Substance: PANTOPRAZOLE SODIUM
     Route: 065
  501. PANTOPRAZOLE SODIUM [Suspect]
     Active Substance: PANTOPRAZOLE SODIUM
     Route: 065
  502. PANTOPRAZOLE SODIUM [Suspect]
     Active Substance: PANTOPRAZOLE SODIUM
     Route: 065
  503. PANTOPRAZOLE SODIUM [Suspect]
     Active Substance: PANTOPRAZOLE SODIUM
     Route: 048
  504. PANTOPRAZOLE SODIUM [Suspect]
     Active Substance: PANTOPRAZOLE SODIUM
     Route: 065
  505. PANTOPRAZOLE SODIUM [Suspect]
     Active Substance: PANTOPRAZOLE SODIUM
     Route: 065
  506. PANTOPRAZOLE SODIUM [Suspect]
     Active Substance: PANTOPRAZOLE SODIUM
     Route: 065
  507. PANTOPRAZOLE SODIUM [Suspect]
     Active Substance: PANTOPRAZOLE SODIUM
     Route: 065
  508. PANTOPRAZOLE SODIUM [Suspect]
     Active Substance: PANTOPRAZOLE SODIUM
     Route: 065
  509. PANTOPRAZOLE SODIUM [Suspect]
     Active Substance: PANTOPRAZOLE SODIUM
     Route: 065
  510. PANTOPRAZOLE SODIUM [Suspect]
     Active Substance: PANTOPRAZOLE SODIUM
     Route: 065
  511. PANTOPRAZOLE SODIUM [Suspect]
     Active Substance: PANTOPRAZOLE SODIUM
     Route: 016
  512. PANTOPRAZOLE SODIUM [Suspect]
     Active Substance: PANTOPRAZOLE SODIUM
     Route: 065
  513. GLUCOSAMINE [Suspect]
     Active Substance: GLUCOSAMINE
     Indication: Rheumatoid arthritis
     Route: 065
  514. GLUCOSAMINE [Suspect]
     Active Substance: GLUCOSAMINE
     Route: 048
  515. PHTHALYLSULFATHIAZOLE [Suspect]
     Active Substance: PHTHALYLSULFATHIAZOLE
     Indication: Rheumatoid arthritis
     Route: 065
  516. CETIRIZINE HYDROCHLORIDE [Suspect]
     Active Substance: CETIRIZINE HYDROCHLORIDE
     Indication: Rheumatoid arthritis
     Route: 065
  517. CAFFEINE [Concomitant]
     Active Substance: CAFFEINE
     Indication: Product used for unknown indication
     Route: 065
  518. CAFFEINE [Concomitant]
     Active Substance: CAFFEINE
     Route: 058
  519. CALCIUM [Concomitant]
     Active Substance: CALCIUM
     Indication: Product used for unknown indication
     Route: 065
  520. CHOLECALCIFEROL [Concomitant]
     Active Substance: CHOLECALCIFEROL
     Indication: Product used for unknown indication
     Route: 065
  521. CYANOCOBALAMIN [Concomitant]
     Active Substance: CYANOCOBALAMIN
     Indication: Product used for unknown indication
     Route: 065
  522. ELBASVIR [Concomitant]
     Active Substance: ELBASVIR
     Indication: Product used for unknown indication
     Route: 065
  523. ERGOCALCIFEROL [Suspect]
     Active Substance: ERGOCALCIFEROL
     Indication: Product used for unknown indication
     Route: 065
  524. IBUPROFEN [Concomitant]
     Active Substance: IBUPROFEN
     Indication: Product used for unknown indication
     Route: 065
  525. LANSOPRAZOLE [Concomitant]
     Active Substance: LANSOPRAZOLE
     Indication: Product used for unknown indication
     Route: 065
  526. LEVOTHYROXINE SODIUM [Concomitant]
     Active Substance: LEVOTHYROXINE SODIUM
     Indication: Product used for unknown indication
     Route: 065
  527. LISINOPRIL [Concomitant]
     Active Substance: LISINOPRIL
     Indication: Product used for unknown indication
     Route: 065
  528. LORAZEPAM [Concomitant]
     Active Substance: LORAZEPAM
     Indication: Product used for unknown indication
     Route: 065
  529. MAGNESIUM [Suspect]
     Active Substance: MAGNESIUM
     Indication: Product used for unknown indication
     Route: 065
  530. MAGNESIUM [Suspect]
     Active Substance: MAGNESIUM
     Route: 065
  531. MAGNESIUM [Suspect]
     Active Substance: MAGNESIUM
     Route: 065
  532. MELOXICAM [Concomitant]
     Active Substance: MELOXICAM
     Indication: Product used for unknown indication
     Route: 065
  533. PIROXICAM [Concomitant]
     Active Substance: PIROXICAM
     Indication: Product used for unknown indication
     Route: 065
  534. PREDNISOLONE [Concomitant]
     Active Substance: PREDNISOLONE
     Indication: Product used for unknown indication
     Route: 065
  535. QUETIAPINE FUMARATE [Concomitant]
     Active Substance: QUETIAPINE FUMARATE
     Indication: Product used for unknown indication
     Route: 065
  536. RAMIPRIL [Suspect]
     Active Substance: RAMIPRIL
     Indication: Rheumatoid arthritis
     Route: 065
  537. RAMIPRIL [Suspect]
     Active Substance: RAMIPRIL
     Indication: Product used for unknown indication
     Route: 016
  538. RAMIPRIL [Suspect]
     Active Substance: RAMIPRIL
     Route: 040
  539. RAMIPRIL [Suspect]
     Active Substance: RAMIPRIL
     Route: 040
  540. RAMIPRIL [Suspect]
     Active Substance: RAMIPRIL
     Route: 065
  541. RAMIPRIL [Suspect]
     Active Substance: RAMIPRIL
     Route: 065
  542. RISEDRONATE SODIUM [Concomitant]
     Active Substance: RISEDRONATE SODIUM
     Indication: Product used for unknown indication
     Route: 065
  543. SULFASALAZINE [Concomitant]
     Active Substance: SULFASALAZINE
     Indication: Product used for unknown indication
     Route: 065
  544. FISH OIL [Concomitant]
     Active Substance: FISH OIL
     Indication: Product used for unknown indication
     Route: 065
  545. VITAMIN D3 [Concomitant]
     Active Substance: CHOLECALCIFEROL
     Indication: Product used for unknown indication
     Route: 065
  546. ATIVAN [Concomitant]
     Active Substance: LORAZEPAM
     Indication: Anxiety
     Route: 065
  547. ATIVAN [Concomitant]
     Active Substance: LORAZEPAM
     Indication: Product used for unknown indication
     Route: 065

REACTIONS (99)
  - Abdominal discomfort [Fatal]
  - Alopecia [Fatal]
  - Anti-cyclic citrullinated peptide antibody positive [Fatal]
  - Arthralgia [Fatal]
  - Asthma [Fatal]
  - Blister [Fatal]
  - Breast cancer stage III [Fatal]
  - Decreased appetite [Fatal]
  - Depression [Fatal]
  - Diarrhoea [Fatal]
  - Drug hypersensitivity [Not Recovered/Not Resolved]
  - Drug ineffective [Fatal]
  - Drug intolerance [Fatal]
  - Drug tolerance decreased [Not Recovered/Not Resolved]
  - Duodenal ulcer perforation [Fatal]
  - Fibromyalgia [Fatal]
  - General physical health deterioration [Fatal]
  - Glossodynia [Fatal]
  - Hand deformity [Fatal]
  - Helicobacter infection [Fatal]
  - Hypoaesthesia [Fatal]
  - Intentional product use issue [Fatal]
  - Irritable bowel syndrome [Fatal]
  - Joint range of motion decreased [Fatal]
  - Live birth [Fatal]
  - Liver disorder [Not Recovered/Not Resolved]
  - Lower limb fracture [Not Recovered/Not Resolved]
  - Lower respiratory tract infection [Fatal]
  - Lupus vulgaris [Not Recovered/Not Resolved]
  - Malaise [Not Recovered/Not Resolved]
  - Maternal exposure during pregnancy [Fatal]
  - Mobility decreased [Fatal]
  - Muscle injury [Fatal]
  - Nasopharyngitis [Fatal]
  - Nausea [Not Recovered/Not Resolved]
  - Off label use [Fatal]
  - Pemphigus [Fatal]
  - Pericarditis [Fatal]
  - Prescribed overdose [Not Recovered/Not Resolved]
  - Prescribed underdose [Not Recovered/Not Resolved]
  - Product use in unapproved indication [Fatal]
  - Product use issue [Not Recovered/Not Resolved]
  - Pruritus [Fatal]
  - Rash [Fatal]
  - Rash pruritic [Not Recovered/Not Resolved]
  - Sciatica [Fatal]
  - Sinusitis [Fatal]
  - Sleep disorder [Not Recovered/Not Resolved]
  - Swelling [Fatal]
  - Synovitis [Fatal]
  - Systemic lupus erythematosus [Fatal]
  - Therapeutic product effect decreased [Not Recovered/Not Resolved]
  - Therapeutic response decreased [Not Recovered/Not Resolved]
  - Therapy non-responder [Not Recovered/Not Resolved]
  - Treatment failure [Not Recovered/Not Resolved]
  - Type 2 diabetes mellitus [Fatal]
  - Ulcer haemorrhage [Not Recovered/Not Resolved]
  - Vomiting [Fatal]
  - Wheezing [Fatal]
  - Wound [Fatal]
  - Wound infection [Fatal]
  - Abdominal pain upper [Fatal]
  - Accidental overdose [Fatal]
  - Arthropathy [Fatal]
  - Aspiration [Fatal]
  - Asthenia [Fatal]
  - Blepharospasm [Fatal]
  - Blood cholesterol increased [Fatal]
  - Bursitis [Fatal]
  - C-reactive protein increased [Fatal]
  - Condition aggravated [Fatal]
  - Confusional state [Fatal]
  - Contraindicated product administered [Fatal]
  - Dizziness [Fatal]
  - Dry mouth [Fatal]
  - Epilepsy [Fatal]
  - Exposure during pregnancy [Fatal]
  - Facet joint syndrome [Fatal]
  - Fatigue [Fatal]
  - Folliculitis [Fatal]
  - Gastrooesophageal reflux disease [Fatal]
  - Headache [Fatal]
  - Hepatic enzyme increased [Fatal]
  - Hypertension [Fatal]
  - Hypocholesterolaemia [Fatal]
  - Impaired healing [Fatal]
  - Inflammation [Fatal]
  - Infusion related reaction [Fatal]
  - Joint swelling [Fatal]
  - Lip dry [Fatal]
  - Liver injury [Fatal]
  - Lung disorder [Fatal]
  - Memory impairment [Fatal]
  - Migraine [Fatal]
  - Muscle spasms [Fatal]
  - Musculoskeletal pain [Fatal]
  - Nail disorder [Fatal]
  - Night sweats [Fatal]
  - Anxiety [Fatal]
